FAERS Safety Report 8541230-7 (Version None)
Quarter: 2012Q3

REPORT INFORMATION
  Report Type: 
  Country: None (occurrence: None)
  Receive Date: 20120726
  Receipt Date: 20110922
  Transmission Date: 20120928
  Serious: No
  Sender: FDA-Public Use
  Company Number: US-ASTRAZENECA-2011SE57129

PATIENT
  Age: 36 Year
  Sex: Female
  Weight: 108.9 kg

DRUGS (2)
  1. ADVAIR DISKUS 100/50 [Concomitant]
     Indication: ASTHMA
     Dosage: ONCE DAILY
     Dates: start: 20060101
  2. SEROQUEL [Suspect]
     Indication: ANXIETY
     Dosage: 300 MG, ONE IN THE MORNING AND ONE AT NIGHT
     Route: 048
     Dates: start: 20010101

REACTIONS (2)
  - OFF LABEL USE [None]
  - DIABETES MELLITUS [None]
